FAERS Safety Report 13825093 (Version 1)
Quarter: 2017Q3

REPORT INFORMATION
  Report Type: Spontaneous
  Country: US (occurrence: US)
  Receive Date: 20170802
  Receipt Date: 20170802
  Transmission Date: 20171127
  Serious: No
  Sender: FDA-Public Use
  Company Number: US-EISAI MEDICAL RESEARCH-AP356-00587-SPO-US

PATIENT
  Age: 34 Year
  Sex: Female
  Weight: 85.3 kg

DRUGS (2)
  1. CONJUGATED LINOLEIC ACID [Concomitant]
     Indication: WEIGHT DECREASED
     Dosage: 2 TABLETS
     Dates: start: 20140320
  2. BELVIQ [Suspect]
     Active Substance: LORCASERIN HYDROCHLORIDE
     Indication: WEIGHT DECREASED
     Route: 048
     Dates: start: 20140401

REACTIONS (3)
  - Nausea [Not Recovered/Not Resolved]
  - Drug ineffective [Unknown]
  - Dizziness [Recovered/Resolved]

NARRATIVE: CASE EVENT DATE: 20140401
